FAERS Safety Report 9801614 (Version 1)
Quarter: 2014Q1

REPORT INFORMATION
  Report Type: Spontaneous
  Country: GB (occurrence: GB)
  Receive Date: 20140107
  Receipt Date: 20140107
  Transmission Date: 20141002
  Serious: Yes (Hospitalization)
  Sender: FDA-Public Use
  Company Number: GB-TEVA-453800ISR

PATIENT
  Age: 70 Year
  Sex: Female

DRUGS (14)
  1. GABAPENTIN [Suspect]
     Indication: BURNING SENSATION
     Dosage: ONE TO BE TAKEN THREE TIMES A DAY. TITRATED UP FROM ONE ON DAY ONE AND TWO ON DAY TWO.
     Route: 048
     Dates: start: 20131114
  2. SERTRALINE [Concomitant]
  3. SENNA [Concomitant]
  4. ZOPICLONE [Concomitant]
  5. BENDROFLUMETHIAZIDE [Concomitant]
  6. CANDESARTAN [Concomitant]
  7. ATORVASTATIN [Concomitant]
  8. LANSOPRAZOLE [Concomitant]
  9. NAPROXEN [Concomitant]
  10. AMITRIPTYLINE HYDROCHLORIDE [Concomitant]
  11. COLECALCIFEROL [Concomitant]
  12. SYSTANE [Concomitant]
  13. CHLORAMPHENICOL [Concomitant]
  14. DEXAMETHASONE [Concomitant]

REACTIONS (4)
  - Nervous system disorder [Recovering/Resolving]
  - General physical health deterioration [Recovering/Resolving]
  - Somnolence [Recovering/Resolving]
  - Blood sodium abnormal [Recovering/Resolving]
